FAERS Safety Report 7935413-4 (Version None)
Quarter: 2011Q4

REPORT INFORMATION
  Report Type: 
  Country: None (occurrence: None)
  Receive Date: 20111122
  Receipt Date: 20111117
  Transmission Date: 20120403
  Serious: Yes (Other)
  Sender: FDA-Public Use
  Company Number: US-MERCK-1110USA04361

PATIENT
  Age: 86 Year
  Sex: Female

DRUGS (2)
  1. ZOCOR [Suspect]
     Route: 048
  2. DILTIAZEM HYDROCHLORIDE [Concomitant]
     Route: 065

REACTIONS (1)
  - SUICIDAL IDEATION [None]
